FAERS Safety Report 23389071 (Version 2)
Quarter: 2024Q1

REPORT INFORMATION
  Report Type: Spontaneous
  Country: US (occurrence: US)
  Receive Date: 20240110
  Receipt Date: 20240122
  Transmission Date: 20240409
  Serious: No
  Sender: FDA-Public Use
  Company Number: US-PFIZER INC-PV202300120281

PATIENT
  Age: 75 Year
  Sex: Male

DRUGS (4)
  1. BOSULIF [Suspect]
     Active Substance: BOSUTINIB MONOHYDRATE
     Indication: Acute lymphocytic leukaemia
     Dosage: 400 MG, 1X/DAY (FOUR 100 MG TABS) WITH FOOD
     Route: 048
  2. BOSULIF [Suspect]
     Active Substance: BOSUTINIB MONOHYDRATE
     Dosage: 400 MG, 1X/DAY (ONE 400 MG TAB) WITH FOOD
     Route: 048
  3. LIPITOR [Concomitant]
     Active Substance: ATORVASTATIN CALCIUM
     Dosage: 40 MG, 1X/DAY (TWO 20 MG TABLETS EVERY MORNING)
     Route: 048
  4. NITROGLYCERIN [Concomitant]
     Active Substance: NITROGLYCERIN
     Indication: Chest pain
     Dosage: 0.3 MG, AS NEEDED
     Route: 060

REACTIONS (2)
  - Frequent bowel movements [Unknown]
  - Off label use [Unknown]
